FAERS Safety Report 13912678 (Version 1)
Quarter: 2017Q3

REPORT INFORMATION
  Report Type: Spontaneous
  Country: US (occurrence: US)
  Receive Date: 20170828
  Receipt Date: 20170828
  Transmission Date: 20171127
  Serious: Yes (Hospitalization)
  Sender: FDA-Public Use
  Company Number: US-PERRIGO-17US026212

PATIENT

DRUGS (1)
  1. LOPERAMIDE HYDROCHLORIDE. [Suspect]
     Active Substance: LOPERAMIDE HYDROCHLORIDE
     Indication: DIARRHOEA
     Dosage: UP TO 80 MG DAILY
     Route: 048

REACTIONS (4)
  - Respiratory failure [Recovered/Resolved]
  - Ileus [Unknown]
  - Drug abuse [Recovered/Resolved]
  - Pneumonia aspiration [Recovered/Resolved]
